FAERS Safety Report 19180036 (Version 1)
Quarter: 2021Q2

REPORT INFORMATION
  Report Type: Spontaneous
  Country: US (occurrence: US)
  Receive Date: 20210423
  Receipt Date: 20210423
  Transmission Date: 20210717
  Serious: Yes (Death)
  Sender: FDA-Public Use
  Company Number: None

PATIENT
  Age: 58 Year
  Sex: Female

DRUGS (1)
  1. CAPECITABINE 500MG TAB [Suspect]
     Active Substance: CAPECITABINE
     Indication: BREAST CANCER FEMALE
     Dosage: OTHER FREQUENCY:QAM?QPM; PO FOR 7D QOD?
     Route: 048
     Dates: start: 20210310, end: 20210422

REACTIONS (1)
  - Death [None]

NARRATIVE: CASE EVENT DATE: 20210422
